FAERS Safety Report 5502091-3 (Version None)
Quarter: 2007Q4

REPORT INFORMATION
  Report Type: 
  Country: None (occurrence: None)
  Receive Date: 20071030
  Receipt Date: 20071018
  Transmission Date: 20080405
  Serious: Yes (Hospitalization)
  Sender: FDA-Public Use
  Company Number: US-SANOFI-SYNTHELABO-A03200704376

PATIENT
  Sex: Female
  Weight: 61.2 kg

DRUGS (6)
  1. ZOFRAN [Concomitant]
     Indication: VOMITING
     Dosage: 3 DAILY
     Route: 048
     Dates: start: 20070301
  2. OXY IR [Concomitant]
     Indication: PAIN
     Dosage: 1 PRN
     Route: 048
     Dates: start: 20031101
  3. METHADONE HCL [Concomitant]
     Indication: PAIN
     Dosage: 2 Q6H
     Route: 048
     Dates: start: 20031101
  4. NEXIUM [Concomitant]
     Indication: GASTRIC ULCER
     Dosage: 1 DAILY
     Route: 065
     Dates: start: 20061105
  5. AMBIEN [Suspect]
     Indication: INSOMNIA
     Dosage: UNK
     Route: 048
     Dates: start: 20061018, end: 20071009
  6. AMBIEN [Suspect]
     Dosage: UNK
     Route: 048
     Dates: start: 20071018

REACTIONS (5)
  - AMNESIA [None]
  - CONCUSSION [None]
  - CONFUSIONAL STATE [None]
  - ROAD TRAFFIC ACCIDENT [None]
  - SOMNAMBULISM [None]
